FAERS Safety Report 11206744 (Version 2)
Quarter: 2015Q2

REPORT INFORMATION
  Report Type: Spontaneous
  Country: US (occurrence: US)
  Receive Date: 20150622
  Receipt Date: 20150622
  Transmission Date: 20150821
  Serious: No
  Sender: FDA-Public Use
  Company Number: US-TAKEDA-2011-04456

PATIENT
  Age: 38 Year
  Sex: Male

DRUGS (3)
  1. VELCADE [Suspect]
     Active Substance: BORTEZOMIB
     Indication: PRODUCT USED FOR UNKNOWN INDICATION
     Dosage: UNK
     Dates: start: 201109
  2. ZOMETA [Concomitant]
     Active Substance: ZOLEDRONIC ACID
     Indication: OSTEOPOROSIS
  3. REVLIMID [Concomitant]
     Active Substance: LENALIDOMIDE
     Indication: PRODUCT USED FOR UNKNOWN INDICATION

REACTIONS (14)
  - Hair texture abnormal [Unknown]
  - Dysphonia [Unknown]
  - Pain in extremity [Unknown]
  - Constipation [Unknown]
  - Fluid retention [Unknown]
  - Hair growth abnormal [Unknown]
  - Chills [Unknown]
  - Depression [Unknown]
  - Insomnia [Recovering/Resolving]
  - Hiccups [Recovering/Resolving]
  - Dysphagia [Unknown]
  - Malaise [Unknown]
  - Dyspnoea [Unknown]
  - Decreased appetite [Unknown]

NARRATIVE: CASE EVENT DATE: 201109
